FAERS Safety Report 10022181 (Version 1)
Quarter: 2013Q4

REPORT INFORMATION
  Report Type: Spontaneous
  Country: BR (occurrence: None)
  Receive Date: 20131213
  Receipt Date: 20131213
  Transmission Date: 20140711
  Serious: Yes (Other)
  Sender: FDA-Public Use
  Company Number: BR-TORRENT-00001828-01

PATIENT
  Age: 69 Year
  Sex: Female

DRUGS (9)
  1. ESPRAN (INN:ESCITALOPRAM OXALATE) [Suspect]
     Indication: DEPRESSION
     Dosage: ONCE DAILY/ORAL
     Route: 048
     Dates: start: 201307
  2. AMATO [Concomitant]
  3. GLUCOVANCE [Concomitant]
  4. ENALABAL [Concomitant]
  5. SIMVASTATIN [Concomitant]
  6. STUGERON [Concomitant]
  7. AMIODARONE [Concomitant]
  8. LEVOTHYROXINE [Concomitant]
  9. BROMAZEPAM [Concomitant]

REACTIONS (2)
  - Tremor [None]
  - Hemiparesis [None]
